FAERS Safety Report 23977402 (Version 1)
Quarter: 2024Q2

REPORT INFORMATION
  Report Type: Spontaneous
  Country: US (occurrence: None)
  Receive Date: 20240614
  Receipt Date: 20240614
  Transmission Date: 20240716
  Serious: Yes (Hospitalization)
  Sender: FDA-Public Use
  Company Number: None

PATIENT
  Age: 83 Year
  Sex: Male

DRUGS (15)
  1. TECLISTAMAB [Suspect]
     Active Substance: TECLISTAMAB
     Indication: Primary amyloidosis
     Dates: start: 20231127, end: 20240412
  2. FIBER THERAPY (CALCIUM POLYCARBOPHIL) [Concomitant]
     Active Substance: CALCIUM POLYCARBOPHIL
  3. LEVOTHYROXINE [Concomitant]
     Active Substance: LEVOTHYROXINE\LEVOTHYROXINE SODIUM
  4. POTASSIUM CHLORIDE [Concomitant]
     Active Substance: POTASSIUM CHLORIDE
  5. FUROSEMIDE [Concomitant]
     Active Substance: FUROSEMIDE
  6. ACYCLOVIR [Concomitant]
     Active Substance: ACYCLOVIR
  7. BACTRIM [Concomitant]
     Active Substance: SULFAMETHOXAZOLE\TRIMETHOPRIM
  8. AMIODARONE [Concomitant]
     Active Substance: AMIODARONE
  9. ASPIRIN [Concomitant]
     Active Substance: ASPIRIN
  10. CYANOCOBALAMIN [Concomitant]
     Active Substance: CYANOCOBALAMIN
  11. FINASTERIDE [Concomitant]
     Active Substance: FINASTERIDE
  12. OMEPRAZOLE [Concomitant]
     Active Substance: DONEPEZIL HYDROCHLORIDE\OMEPRAZOLE\OMEPRAZOLE MAGNESIUM
  13. CHOLECALCIFEROL [Concomitant]
     Active Substance: CHOLECALCIFEROL
  14. FOLIC ACID [Concomitant]
     Active Substance: FOLIC ACID
  15. TAMSULOSIN [Concomitant]
     Active Substance: TAMSULOSIN

REACTIONS (6)
  - Neutrophil count decreased [None]
  - Immune-mediated enterocolitis [None]
  - Asthenia [None]
  - Movement disorder [None]
  - Speech disorder [None]
  - Dysphagia [None]

NARRATIVE: CASE EVENT DATE: 20240420
